FAERS Safety Report 24602269 (Version 1)
Quarter: 2024Q4

REPORT INFORMATION
  Report Type: Spontaneous
  Country: ES (occurrence: ES)
  Receive Date: 20241111
  Receipt Date: 20241111
  Transmission Date: 20250114
  Serious: Yes (Life-Threatening, Hospitalization)
  Sender: ACCORD
  Company Number: None

PATIENT
  Age: 78 Year
  Sex: Male
  Weight: 75 kg

DRUGS (1)
  1. AZACITIDINE [Suspect]
     Active Substance: AZACITIDINE
     Indication: Myelodysplastic syndrome
     Dosage: 69 MG, STRENGTH:  25 MG/ML, 1 VIAL
     Dates: start: 20240902, end: 20240908

REACTIONS (1)
  - Encephalitis herpes [Recovering/Resolving]

NARRATIVE: CASE EVENT DATE: 20240915
